FAERS Safety Report 6847218-6 (Version None)
Quarter: 2010Q2

REPORT INFORMATION
  Report Type: 
  Country: None (occurrence: None)
  Receive Date: 20100629
  Receipt Date: 20100506
  Transmission Date: 20101027
  Serious: No
  Sender: FDA-Public Use
  Company Number: US-WYE-H15021910

PATIENT
  Age: 41 Year
  Sex: Female
  Weight: 68.1 kg

DRUGS (5)
  1. PRISTIQ [Suspect]
     Indication: DEPRESSION
     Dosage: 50 MG 1X PER 1 DAY
     Dates: start: 20100420
  2. ADDERALL(AMFETAMINE [Concomitant]
  3. ASPARTATE/AMFETAMINE [Concomitant]
  4. SULFATE/DEXAMFETAMINE [Concomitant]
  5. SACCHARATE/DEXAMFETAMINE SULFATE) [Concomitant]

REACTIONS (5)
  - AGITATION [None]
  - DECREASED APPETITE [None]
  - DIZZINESS [None]
  - DRY MOUTH [None]
  - NAUSEA [None]
